FAERS Safety Report 14498623 (Version 1)
Quarter: 2018Q1

REPORT INFORMATION
  Report Type: Spontaneous
  Country: US (occurrence: US)
  Receive Date: 20180207
  Receipt Date: 20180207
  Transmission Date: 20180509
  Serious: Yes (Hospitalization)
  Sender: FDA-Public Use
  Company Number: US-ASTRAZENECA-2018SE13809

PATIENT
  Age: 60 Year
  Sex: Female
  Weight: 52.2 kg

DRUGS (8)
  1. MONTELUKAST [Concomitant]
     Active Substance: MONTELUKAST SODIUM
     Indication: ASTHMA
     Route: 048
  2. VENTOLIN [Concomitant]
     Active Substance: ALBUTEROL SULFATE
     Indication: CHRONIC OBSTRUCTIVE PULMONARY DISEASE
     Dosage: AS REQUIRED
     Route: 055
  3. SOMA [Concomitant]
     Active Substance: CARISOPRODOL
     Indication: MUSCLE SPASMS
     Route: 048
  4. SYMBICORT [Suspect]
     Active Substance: BUDESONIDE\FORMOTEROL FUMARATE DIHYDRATE
     Indication: CHRONIC OBSTRUCTIVE PULMONARY DISEASE
     Dosage: 160/4.5, UNKNOWN  UNKNOWN
     Route: 055
  5. BEVESPI AEROSPHERE [Suspect]
     Active Substance: FORMOTEROL FUMARATE\GLYCOPYRROLATE
     Indication: CHRONIC OBSTRUCTIVE PULMONARY DISEASE
     Dosage: 9/4.8 MCG 2 PUFFS TWICE A DAY
     Route: 055
     Dates: start: 2017
  6. OXYGEN. [Concomitant]
     Active Substance: OXYGEN
     Dosage: CONTINUOUSLY
     Route: 055
  7. TRAMADOL. [Concomitant]
     Active Substance: TRAMADOL
     Indication: PAIN
     Dosage: 50.0MG AS REQUIRED
     Route: 048
  8. LIDOCAINE. [Suspect]
     Active Substance: LIDOCAINE
     Indication: SPINAL DISORDER
     Dosage: 5.0MG AS REQUIRED
     Route: 061

REACTIONS (11)
  - Insurance issue [Unknown]
  - Therapy cessation [Unknown]
  - Drug effect decreased [Not Recovered/Not Resolved]
  - Circumstance or information capable of leading to medication error [Unknown]
  - Bronchitis [Not Recovered/Not Resolved]
  - Intentional product misuse [Not Recovered/Not Resolved]
  - Spinal disorder [Unknown]
  - Nerve compression [Unknown]
  - Intervertebral disc protrusion [Unknown]
  - Pneumonia [Recovered/Resolved]
  - Anxiety [Not Recovered/Not Resolved]

NARRATIVE: CASE EVENT DATE: 2017
